FAERS Safety Report 7326737-2 (Version None)
Quarter: 2011Q1

REPORT INFORMATION
  Report Type: 
  Country: None (occurrence: None)
  Receive Date: 20110302
  Receipt Date: 20100329
  Transmission Date: 20110831
  Serious: Yes (Other)
  Sender: FDA-Public Use
  Company Number: US-PFIZER INC-2010040687

PATIENT
  Sex: Female

DRUGS (1)
  1. VFEND [Suspect]
     Dosage: UNK

REACTIONS (4)
  - DYSPNOEA [None]
  - HYPERHIDROSIS [None]
  - ANXIETY [None]
  - TREMOR [None]
